FAERS Safety Report 6282436-X (Version None)
Quarter: 2009Q3

REPORT INFORMATION
  Report Type: 
  Country: None (occurrence: None)
  Receive Date: 20090724
  Receipt Date: 20090716
  Transmission Date: 20100115
  Serious: Yes (Other)
  Sender: FDA-Public Use
  Company Number: US-ROCHE-502689

PATIENT
  Age: 77 Year
  Sex: Female

DRUGS (11)
  1. CAPECITABINE [Suspect]
     Dosage: 500 MG/M2, BID/D1-14/ Q3W.
     Route: 065
  2. CAPECITABINE [Suspect]
     Dosage: 500 MG/M2, BID/D1-14/ Q3W.
     Route: 065
  3. AVASTIN [Suspect]
     Dosage: 7.5 MG/KG, Q 21 D
     Route: 065
  4. IRINOTECAN HCL [Suspect]
     Dosage: 130 MG/M2, Q3W.
     Route: 065
  5. IRINOTECAN HCL [Suspect]
     Dosage: 200 MG/M2, Q 21 D
     Route: 065
  6. LISINOPRIL [Concomitant]
     Indication: DRUG USE FOR UNKNOWN INDICATION
  7. METOPROLOL TARTRATE [Concomitant]
     Indication: DRUG USE FOR UNKNOWN INDICATION
  8. LOVASTATIN [Concomitant]
     Indication: DRUG USE FOR UNKNOWN INDICATION
  9. PANTOPRAZOLE SODIUM [Concomitant]
     Indication: DRUG USE FOR UNKNOWN INDICATION
  10. OXYCODONE HCL [Concomitant]
     Indication: DRUG USE FOR UNKNOWN INDICATION
  11. ACETAMINOPHEN [Concomitant]
     Indication: DRUG USE FOR UNKNOWN INDICATION

REACTIONS (1)
  - FANCONI SYNDROME [None]
